FAERS Safety Report 6841265-6 (Version None)
Quarter: 2010Q3

REPORT INFORMATION
  Report Type: 
  Country: None (occurrence: None)
  Receive Date: 20100714
  Receipt Date: 20070630
  Transmission Date: 20110219
  Serious: No
  Sender: FDA-Public Use
  Company Number: US-PFIZER INC-2007055249

PATIENT
  Sex: Female
  Weight: 59.09 kg

DRUGS (4)
  1. CHANTIX [Suspect]
     Indication: SMOKING CESSATION THERAPY
     Dates: start: 20070601
  2. ZOLOFT [Concomitant]
  3. VALTREX [Concomitant]
  4. ORAL CONTRACEPTIVE NOS [Concomitant]

REACTIONS (3)
  - ABNORMAL DREAMS [None]
  - DECREASED INTEREST [None]
  - FEELING ABNORMAL [None]
